FAERS Safety Report 23089350 (Version 2)
Quarter: 2024Q3

REPORT INFORMATION
  Report Type: Spontaneous
  Country: GR (occurrence: GR)
  Receive Date: 20231020
  Receipt Date: 20240809
  Transmission Date: 20241017
  Serious: Yes (Life-Threatening, Other)
  Sender: MERCK
  Company Number: None

PATIENT
  Age: 71 Year
  Sex: Male
  Weight: 60 kg

DRUGS (16)
  1. POSACONAZOLE [Suspect]
     Active Substance: POSACONAZOLE
     Indication: Infection
     Dosage: 100 MILLIGRAM, QD
     Route: 048
     Dates: start: 20230803, end: 20230909
  2. SULFAMETHOXAZOLE\TRIMETHOPRIM [Suspect]
     Active Substance: SULFAMETHOXAZOLE\TRIMETHOPRIM
     Indication: Infection
     Dosage: 400+80 MG 1 AMP X2
     Route: 048
     Dates: start: 20230828, end: 20230909
  3. SULFAMETHOXAZOLE\TRIMETHOPRIM [Suspect]
     Active Substance: SULFAMETHOXAZOLE\TRIMETHOPRIM
     Indication: Infection
     Dosage: 1 DOSAGE FORM, Q12H
     Route: 048
     Dates: start: 20230814, end: 20230828
  4. ASPIRIN [Concomitant]
     Active Substance: ASPIRIN
     Indication: Angiopathy
     Dosage: 1 DOSAGE FORM, QD
     Dates: start: 20190514, end: 20230909
  5. LASIX [Concomitant]
     Active Substance: FUROSEMIDE
     Indication: Cardiac failure
     Dosage: 40 MILLIGRAM, QD
     Dates: start: 20190514, end: 20230928
  6. ATORVASTATIN CALCIUM [Concomitant]
     Active Substance: ATORVASTATIN CALCIUM
     Indication: Cardiac failure
     Dosage: 20 MILLIGRAM, QD
     Dates: start: 20190514, end: 20230928
  7. ATORVASTATIN CALCIUM [Concomitant]
     Active Substance: ATORVASTATIN CALCIUM
     Indication: Dyslipidaemia
  8. ATORVASTATIN CALCIUM [Concomitant]
     Active Substance: ATORVASTATIN CALCIUM
     Indication: Peripheral arterial occlusive disease
  9. ATORVASTATIN CALCIUM [Concomitant]
     Active Substance: ATORVASTATIN CALCIUM
     Indication: Coronary artery disease
  10. INNOHEP [Concomitant]
     Active Substance: TINZAPARIN SODIUM
     Indication: Prophylaxis
     Dosage: 4500 INTERNATIONAL UNIT, QD
     Route: 058
     Dates: start: 20230828, end: 20230909
  11. INCLAUD [Concomitant]
     Indication: Angiopathy
     Dosage: 50 MILLIGRAM, Q12H
     Dates: start: 20220801, end: 20230909
  12. AMLODIPINE BESYLATE\OLMESARTAN MEDOXOMIL [Concomitant]
     Active Substance: AMLODIPINE BESYLATE\OLMESARTAN MEDOXOMIL
     Indication: Hypertension
     Dates: start: 20190514, end: 20230928
  13. INSULIN PORK\INSULIN PURIFIED PORK [Concomitant]
     Active Substance: INSULIN PORK\INSULIN PURIFIED PORK
     Indication: Diabetes mellitus
     Dosage: BEFORE THE MEAL X3 DEPENDING ON BLOOD SUGAR 4-15 UNITS
     Dates: start: 20230828, end: 20230909
  14. EPLERENONE [Concomitant]
     Active Substance: EPLERENONE
     Indication: Cardiac failure
     Dosage: 25 MILLIGRAM, QD
     Dates: start: 20190514, end: 20230928
  15. BISOPROLOL FUMARATE [Concomitant]
     Active Substance: BISOPROLOL FUMARATE
     Indication: Cardiac failure
     Dosage: 5 MILLIGRAM, QD
     Dates: start: 20190514, end: 20230928
  16. XARELTO [Concomitant]
     Active Substance: RIVAROXABAN
     Indication: Angiopathy
     Dosage: 2.5 MILLIGRAM, Q12H
     Dates: start: 20220829, end: 20230909

REACTIONS (1)
  - Thrombocytopenia [Recovered/Resolved]

NARRATIVE: CASE EVENT DATE: 20230909
